FAERS Safety Report 15339943 (Version 2)
Quarter: 2018Q3

REPORT INFORMATION
  Report Type: Spontaneous
  Country: FI (occurrence: FI)
  Receive Date: 20180831
  Receipt Date: 20180919
  Transmission Date: 20181010
  Serious: Yes (Other)
  Sender: FDA-Public Use
  Company Number: PHHY2018FI087107

PATIENT
  Age: 47 Year
  Sex: Female

DRUGS (1)
  1. OPATANOL [Suspect]
     Active Substance: OLOPATADINE
     Indication: EYE ALLERGY
     Dosage: 1 DROP IN THE EVENING AND SOMETIMES ALSO 1 DROP IN THE MORNINGS
     Route: 047
     Dates: start: 201808, end: 201808

REACTIONS (3)
  - Angioedema [Recovered/Resolved]
  - Swelling face [Recovered/Resolved]
  - Eyelid oedema [Recovered/Resolved]

NARRATIVE: CASE EVENT DATE: 2018
